FAERS Safety Report 10597815 (Version 1)
Quarter: 2014Q4

REPORT INFORMATION
  Report Type: Spontaneous
  Country: US (occurrence: None)
  Receive Date: 20141120
  Receipt Date: 20141120
  Transmission Date: 20150529
  Serious: Yes (Other)
  Sender: FDA-Public Use
  Company Number: None

PATIENT
  Age: 56 Year
  Sex: Female

DRUGS (1)
  1. DULOXETINE HCL [Suspect]
     Active Substance: DULOXETINE HYDROCHLORIDE
     Indication: BIPOLAR DISORDER
     Dosage: 60MG 2X, ONCE DAILY, TAKEN BY MOUTH.
     Route: 048
     Dates: start: 20140801, end: 20141119

REACTIONS (9)
  - Anger [None]
  - Unevaluable event [None]
  - Product substitution issue [None]
  - Crying [None]
  - Depression [None]
  - Dry mouth [None]
  - Social avoidant behaviour [None]
  - Cheilitis [None]
  - Poor personal hygiene [None]
